FAERS Safety Report 9643589 (Version 1)
Quarter: 2013Q4

REPORT INFORMATION
  Report Type: Spontaneous
  Country: CR (occurrence: CR)
  Receive Date: 20131024
  Receipt Date: 20131024
  Transmission Date: 20140711
  Serious: Yes (Death)
  Sender: FDA-Public Use
  Company Number: CR-GLAXOSMITHKLINE-A1046573A

PATIENT
  Age: 46 Year
  Sex: Male

DRUGS (2)
  1. PAXIL CR [Suspect]
     Indication: MAJOR DEPRESSION
     Dosage: 25MG UNKNOWN
     Route: 048
  2. UNSPECIFIED MEDICATION [Concomitant]

REACTIONS (1)
  - Completed suicide [Fatal]
